FAERS Safety Report 6555182-2 (Version None)
Quarter: 2010Q1

REPORT INFORMATION
  Report Type: 
  Country: None (occurrence: None)
  Receive Date: 20100128
  Receipt Date: 20100125
  Transmission Date: 20100710
  Serious: Yes (Life-Threatening)
  Sender: FDA-Public Use
  Company Number: US-ASTRAZENECA-2010SE03346

PATIENT
  Age: 824 Month
  Sex: Female
  Weight: 62.6 kg

DRUGS (3)
  1. SEROQUEL [Suspect]
     Indication: BIPOLAR DISORDER
     Route: 048
     Dates: start: 20050101
  2. ZOLOFT [Concomitant]
     Indication: DEPRESSION
  3. LORAZEPAM [Concomitant]
     Indication: ANXIETY

REACTIONS (1)
  - AMYOTROPHIC LATERAL SCLEROSIS [None]
